FAERS Safety Report 15352264 (Version 1)
Quarter: 2018Q3

REPORT INFORMATION
  Report Type: Spontaneous
  Country: US (occurrence: US)
  Receive Date: 20180905
  Receipt Date: 20180905
  Transmission Date: 20181010
  Serious: Yes (Other)
  Sender: FDA-Public Use
  Company Number: US-BAYER-2018-164069

PATIENT
  Sex: Female

DRUGS (1)
  1. MIRENA [Suspect]
     Active Substance: LEVONORGESTREL
     Dosage: 20 MCG/24HR, CONT
     Route: 015
     Dates: start: 201010, end: 20180822

REACTIONS (5)
  - Device use issue [None]
  - Drug ineffective [None]
  - Abdominal pain lower [None]
  - Embedded device [None]
  - Pregnancy with contraceptive device [None]

NARRATIVE: CASE EVENT DATE: 2014
